FAERS Safety Report 11349432 (Version 1)
Quarter: 2015Q3

REPORT INFORMATION
  Report Type: Spontaneous
  Country: US (occurrence: None)
  Receive Date: 20150805
  Receipt Date: 20150805
  Transmission Date: 20151125
  Serious: Yes (Hospitalization, Disabling)
  Sender: FDA-Public Use
  Company Number: USW201507-000196

PATIENT
  Age: 68 Year
  Sex: Male
  Weight: 61.23 kg

DRUGS (3)
  1. GABAPENTIN (GABAPENTIN) (GABAPENTIN) [Concomitant]
     Active Substance: GABAPENTIN
  2. APOKYN [Suspect]
     Active Substance: APOMORPHINE HYDROCHLORIDE
     Indication: PARKINSON^S DISEASE
     Dosage: 0.4 ML, Q 1D PRN, SITE: VAIED, SUBCUTANEOUS
     Route: 058
     Dates: start: 20141214, end: 20150714
  3. RYTARY (CARBIDOPA, LEVODOPA) (CARBIDOPA, LEVODOPA) [Concomitant]

REACTIONS (2)
  - Asthenia [None]
  - Abasia [None]
